FAERS Safety Report 9852734 (Version 1)
Quarter: 2014Q1

REPORT INFORMATION
  Report Type: Spontaneous
  Country: US (occurrence: None)
  Receive Date: 20140128
  Receipt Date: 20140128
  Transmission Date: 20141002
  Serious: Yes (Other)
  Sender: FDA-Public Use
  Company Number: None

PATIENT
  Age: 65 Year
  Sex: Female
  Weight: 96.16 kg

DRUGS (10)
  1. LEVOFLOXACIN LEVAQUIN MFG: SANDOZ [Suspect]
     Indication: PNEUMONIA
     Route: 048
     Dates: start: 20131203, end: 20131211
  2. METFORMIN [Concomitant]
  3. DIOVAR [Concomitant]
  4. ATENOLOL [Concomitant]
  5. VITA D-3 [Concomitant]
  6. PRILOSEC [Concomitant]
  7. ASPIRIN [Concomitant]
  8. TYLENOL [Concomitant]
  9. IBUPROFIN NITE TIME [Concomitant]
  10. OMEPRAZOLE [Concomitant]

REACTIONS (3)
  - Pain [None]
  - Dizziness [None]
  - Vomiting [None]
